FAERS Safety Report 23936525 (Version 1)
Quarter: 2024Q2

REPORT INFORMATION
  Report Type: Spontaneous
  Country: US (occurrence: US)
  Receive Date: 20240604
  Receipt Date: 20240604
  Transmission Date: 20240716
  Serious: Yes (Hospitalization)
  Sender: FDA-Public Use
  Company Number: US-ROCHE-2803794

PATIENT
  Sex: Male

DRUGS (6)
  1. VALGANCICLOVIR [Suspect]
     Active Substance: VALGANCICLOVIR
     Indication: Liver transplant
     Dosage: 2 TABLETS TWICE A DAY(1800 MG TOTAL)
     Route: 048
  2. VALGANCICLOVIR [Suspect]
     Active Substance: VALGANCICLOVIR
     Indication: Cytomegalovirus viraemia
     Dosage: 2 TABLETS TWICE A DAY(1800 MG TOTAL)
     Route: 048
  3. VALGANCICLOVIR [Suspect]
     Active Substance: VALGANCICLOVIR
     Indication: Cytomegalovirus infection
     Dosage: 2 TABLETS TWICE A DAY(1800 MG TOTAL)
     Route: 048
  4. VALGANCICLOVIR [Suspect]
     Active Substance: VALGANCICLOVIR
     Indication: Liver transplant
     Dosage: 2 TABLETS ONCE A DAY
     Route: 048
  5. VALGANCICLOVIR [Suspect]
     Active Substance: VALGANCICLOVIR
     Indication: Cytomegalovirus viraemia
     Dosage: 2 TABLETS ONCE A DAY
     Route: 048
  6. VALGANCICLOVIR [Suspect]
     Active Substance: VALGANCICLOVIR
     Indication: Cytomegalovirus infection
     Dosage: 2 TABLETS ONCE A DAY
     Route: 048

REACTIONS (2)
  - Off label use [Unknown]
  - Haematological infection [Unknown]
